FAERS Safety Report 11028836 (Version 2)
Quarter: 2015Q2

REPORT INFORMATION
  Report Type: Spontaneous
  Country: US (occurrence: US)
  Receive Date: 20150414
  Receipt Date: 20150525
  Transmission Date: 20150821
  Serious: No
  Sender: FDA-Public Use
  Company Number: US-JNJFOC-20131205681

PATIENT
  Sex: Female
  Weight: 58.97 kg

DRUGS (3)
  1. ORTHO TRI CYCLEN LO [Suspect]
     Active Substance: ETHINYL ESTRADIOL\NORGESTIMATE
     Indication: CONTRACEPTION
     Route: 048
     Dates: start: 2013
  2. ORTHO TRI CYCLEN LO [Suspect]
     Active Substance: ETHINYL ESTRADIOL\NORGESTIMATE
     Indication: CONTRACEPTION
     Route: 048
     Dates: start: 2012, end: 2013
  3. NEXIUM [Concomitant]
     Active Substance: ESOMEPRAZOLE MAGNESIUM
     Indication: GASTRIC ULCER
     Route: 065
     Dates: start: 201304

REACTIONS (5)
  - Drug dose omission [Recovered/Resolved]
  - Fatigue [Unknown]
  - Product label issue [Unknown]
  - Wrong technique in drug usage process [Unknown]
  - Nausea [Unknown]

NARRATIVE: CASE EVENT DATE: 2013
